FAERS Safety Report 5853172-6 (Version None)
Quarter: 2008Q3

REPORT INFORMATION
  Report Type: 
  Country: None (occurrence: None)
  Receive Date: 20080821
  Receipt Date: 20080806
  Transmission Date: 20090109
  Serious: No
  Sender: FDA-Public Use
  Company Number: US-BOEHRINGER INGELHEIM GMBH, GERMANY-2008-BP-07002BP

PATIENT
  Age: 71 Year
  Sex: Female

DRUGS (6)
  1. MOBIC [Suspect]
     Indication: BACK PAIN
     Route: 048
     Dates: start: 20061001
  2. MOBIC [Suspect]
     Indication: SPINAL COLUMN STENOSIS
  3. SYNTHROID [Concomitant]
  4. PROVIGIL [Concomitant]
  5. NEXIUM [Concomitant]
  6. REQUIP [Concomitant]

REACTIONS (1)
  - CONSTIPATION [None]
